FAERS Safety Report 19646936 (Version 1)
Quarter: 2021Q3

REPORT INFORMATION
  Report Type: Spontaneous
  Country: CN (occurrence: CN)
  Receive Date: 20210802
  Receipt Date: 20210802
  Transmission Date: 20211014
  Serious: Yes (Hospitalization, Other)
  Sender: FDA-Public Use
  Company Number: CN-PFIZER INC-202100924107

PATIENT
  Age: 61 Year
  Sex: Male
  Weight: 48.3 kg

DRUGS (8)
  1. LINEZOLID. [Suspect]
     Active Substance: LINEZOLID
     Indication: PYREXIA
     Dosage: 600 MG, 1X/DAY
     Route: 048
     Dates: start: 20210628, end: 20210706
  2. SODIUM CHLORIDE. [Concomitant]
     Active Substance: SODIUM CHLORIDE
     Dosage: 100 ML, 4X/DAY
     Route: 041
     Dates: start: 20210624, end: 20210706
  3. SULPERAZON [Suspect]
     Active Substance: CEFOPERAZONE SODIUM\SULBACTAM SODIUM
     Indication: PNEUMONIA
     Dosage: 3 G, 3X/DAY
     Route: 041
     Dates: start: 20210623
  4. LINEZOLID. [Suspect]
     Active Substance: LINEZOLID
     Indication: PNEUMONIA
  5. SODIUM CHLORIDE. [Concomitant]
     Active Substance: SODIUM CHLORIDE
     Indication: VEHICLE SOLUTION USE
     Dosage: 100 ML, 3X/DAY
     Route: 041
     Dates: start: 20210623
  6. SULPERAZON [Suspect]
     Active Substance: CEFOPERAZONE SODIUM\SULBACTAM SODIUM
     Dosage: 1.5 MG, 4X/DAY
     Route: 041
     Dates: start: 20210624, end: 20210706
  7. ZYVOX [Suspect]
     Active Substance: LINEZOLID
     Indication: PYREXIA
     Dosage: 600 MG, 1X/DAY
     Route: 041
     Dates: start: 20210628, end: 20210705
  8. ZYVOX [Suspect]
     Active Substance: LINEZOLID
     Indication: PNEUMONIA

REACTIONS (9)
  - Upper gastrointestinal haemorrhage [Recovering/Resolving]
  - Mouth haemorrhage [Recovered/Resolved]
  - Off label use [Unknown]
  - Pyrexia [Unknown]
  - Haemoglobin decreased [Not Recovered/Not Resolved]
  - Gingival bleeding [Recovered/Resolved]
  - Pneumonia [Unknown]
  - Platelet count decreased [Recovering/Resolving]
  - Condition aggravated [Unknown]

NARRATIVE: CASE EVENT DATE: 20210623
